FAERS Safety Report 19909469 (Version 1)
Quarter: 2021Q4

REPORT INFORMATION
  Report Type: Spontaneous
  Country: US (occurrence: US)
  Receive Date: 20211001
  Receipt Date: 20211001
  Transmission Date: 20220303
  Serious: No
  Sender: FDA-Public Use
  Company Number: US-AMARIN PHARMA, INC.-2021AMR000415

PATIENT
  Age: 60 Year
  Sex: Female

DRUGS (4)
  1. VASCEPA [Suspect]
     Active Substance: ICOSAPENT ETHYL
     Indication: Blood triglycerides increased
  2. VASCEPA [Suspect]
     Active Substance: ICOSAPENT ETHYL
     Indication: Cardiovascular event prophylaxis
  3. REPATHA [Concomitant]
     Active Substance: EVOLOCUMAB
     Indication: Blood triglycerides increased
  4. REPATHA [Concomitant]
     Active Substance: EVOLOCUMAB
     Indication: Cardiovascular event prophylaxis

REACTIONS (2)
  - Urticaria [Recovered/Resolved]
  - Nail discolouration [Recovered/Resolved]
